FAERS Safety Report 4911820-9 (Version None)
Quarter: 2006Q1

REPORT INFORMATION
  Report Type: 
  Country: None (occurrence: None)
  Receive Date: 20060213
  Receipt Date: 20060213
  Transmission Date: 20060701
  Serious: Yes (Hospitalization, Other)
  Sender: FDA-Public Use
  Company Number: None

PATIENT
  Sex: Male
  Weight: 72.5755 kg

DRUGS (1)
  1. LEVAQUIN [Suspect]
     Indication: FOOD POISONING
     Dosage: 500MG   1/DAY   PO
     Route: 048
     Dates: start: 20051228, end: 20051230

REACTIONS (12)
  - AGITATION [None]
  - ANXIETY [None]
  - CHEST PAIN [None]
  - DISSOCIATION [None]
  - DYSGEUSIA [None]
  - INSOMNIA [None]
  - MUSCLE SPASMS [None]
  - NEUROPATHY [None]
  - NIGHTMARE [None]
  - PARAESTHESIA [None]
  - TREMOR [None]
  - VISION BLURRED [None]
